FAERS Safety Report 25685481 (Version 1)
Quarter: 2025Q3

REPORT INFORMATION
  Report Type: Spontaneous
  Country: US (occurrence: None)
  Receive Date: 20250814
  Receipt Date: 20250814
  Transmission Date: 20251020
  Serious: No
  Sender: FDA-CTU
  Company Number: None

PATIENT
  Age: 8 Year
  Sex: Female

DRUGS (10)
  1. VIGABATRIN [Suspect]
     Active Substance: VIGABATRIN
     Indication: Partial seizures
  2. VIGABATRIN [Suspect]
     Active Substance: VIGABATRIN
     Indication: Partial seizures
  3. CLONAZEPAM [Concomitant]
     Active Substance: CLONAZEPAM
  4. ONDANSETRON HYDROCHLORIDE [Concomitant]
     Active Substance: ONDANSETRON HYDROCHLORIDE
  5. CLOBAZAM [Concomitant]
     Active Substance: CLOBAZAM
  6. ALBUTEROL [Concomitant]
     Active Substance: ALBUTEROL
  7. KEPPRA [Concomitant]
     Active Substance: LEVETIRACETAM
  8. FAMOTIDINE [Concomitant]
     Active Substance: FAMOTIDINE
  9. VALTOCO 10 MG DOSE [Concomitant]
  10. ALBUTEROL SULFATE [Concomitant]
     Active Substance: ALBUTEROL SULFATE

REACTIONS (6)
  - Stomatitis [None]
  - Abdominal pain upper [None]
  - Decreased appetite [None]
  - Fatigue [None]
  - Constipation [None]
  - Duodenogastric reflux [None]

NARRATIVE: CASE EVENT DATE: 20250813
